FAERS Safety Report 14234356 (Version 1)
Quarter: 2017Q4

REPORT INFORMATION
  Report Type: Spontaneous
  Country: US (occurrence: US)
  Receive Date: 20171129
  Receipt Date: 20171129
  Transmission Date: 20180321
  Serious: No
  Sender: FDA-Public Use
  Company Number: US-JNJFOC-20171123827

PATIENT
  Sex: Male

DRUGS (10)
  1. SINGULAIR [Concomitant]
     Active Substance: MONTELUKAST SODIUM
  2. LINZESS [Concomitant]
     Active Substance: LINACLOTIDE
  3. TAMSULOSIN [Concomitant]
     Active Substance: TAMSULOSIN
  4. CEFALEXIN [Concomitant]
     Active Substance: CEPHALEXIN
  5. MONTELUKAST [Concomitant]
     Active Substance: MONTELUKAST SODIUM
  6. VALACYCLOVIR [Concomitant]
     Active Substance: VALACYCLOVIR HYDROCHLORIDE
  7. BETAMETHASONE. [Concomitant]
     Active Substance: BETAMETHASONE
  8. IMBRUVICA [Suspect]
     Active Substance: IBRUTINIB
     Indication: CHRONIC LYMPHOCYTIC LEUKAEMIA
     Route: 048
     Dates: start: 20160325
  9. RANITIDINE. [Concomitant]
     Active Substance: RANITIDINE
  10. AMITRIPTYLINE [Concomitant]
     Active Substance: AMITRIPTYLINE

REACTIONS (1)
  - Constipation [Unknown]

NARRATIVE: CASE EVENT DATE: 2016
